FAERS Safety Report 18770196 (Version 6)
Quarter: 2021Q4

REPORT INFORMATION
  Report Type: Report from Study
  Country: US (occurrence: US)
  Receive Date: 20210121
  Receipt Date: 20211008
  Transmission Date: 20220303
  Serious: Yes (Hospitalization)
  Sender: FDA-Public Use
  Company Number: US-SEATTLE GENETICS-2020SGN05191

PATIENT
  Age: 50 Year
  Sex: Female

DRUGS (9)
  1. TUCATINIB [Suspect]
     Active Substance: TUCATINIB
     Indication: Breast cancer female
     Dosage: UNK
  2. TUCATINIB [Suspect]
     Active Substance: TUCATINIB
     Dosage: UNK
  3. TUCATINIB [Suspect]
     Active Substance: TUCATINIB
     Dosage: UNK
  4. TUCATINIB [Suspect]
     Active Substance: TUCATINIB
     Dosage: UNK
  5. TUCATINIB [Suspect]
     Active Substance: TUCATINIB
     Dosage: UNK
  6. TUCATINIB [Suspect]
     Active Substance: TUCATINIB
     Dosage: UNK
  7. TUCATINIB [Suspect]
     Active Substance: TUCATINIB
     Dosage: UNK
  8. CAPECITABINE [Suspect]
     Active Substance: CAPECITABINE
     Indication: Breast cancer female
  9. DEXAMETHASONE [Suspect]
     Active Substance: DEXAMETHASONE
     Indication: Product used for unknown indication

REACTIONS (29)
  - Urinary tract infection [Unknown]
  - Skin infection [Unknown]
  - Bacterial infection [Unknown]
  - Dizziness [Unknown]
  - Tremor [Unknown]
  - Brain neoplasm malignant [Unknown]
  - Unevaluable event [Unknown]
  - Weight increased [Unknown]
  - Hypertension [Unknown]
  - Insomnia [Unknown]
  - Fall [Unknown]
  - Balance disorder [Unknown]
  - Loss of consciousness [Unknown]
  - Depressed mood [Unknown]
  - Crying [Unknown]
  - Noninfective encephalitis [Unknown]
  - Platelet count increased [Unknown]
  - Mean platelet volume decreased [Unknown]
  - Dry skin [Unknown]
  - Cushingoid [Unknown]
  - Neoplasm progression [Unknown]
  - Speech disorder [Unknown]
  - Headache [Unknown]
  - Fatigue [Unknown]
  - Blood sodium decreased [Unknown]
  - Haemoglobin decreased [Unknown]
  - Liver function test increased [Unknown]
  - Weight decreased [Unknown]
  - Diarrhoea [Recovering/Resolving]

NARRATIVE: CASE EVENT DATE: 20201124
